FAERS Safety Report 13837364 (Version 1)
Quarter: 2017Q3

REPORT INFORMATION
  Report Type: Spontaneous
  Country: US (occurrence: US)
  Receive Date: 20170804
  Receipt Date: 20170804
  Transmission Date: 20171127
  Serious: No
  Sender: FDA-Public Use
  Company Number: US-ROCHE-1043139

PATIENT
  Sex: Female
  Weight: 62.2 kg

DRUGS (1)
  1. BONIVA [Suspect]
     Active Substance: IBANDRONATE SODIUM
     Indication: OSTEOPOROSIS
     Route: 048

REACTIONS (5)
  - Gingival operation [Recovered/Resolved]
  - Pain in extremity [Recovered/Resolved]
  - Arthritis [Recovered/Resolved]
  - Musculoskeletal pain [Recovered/Resolved]
  - Paraesthesia [Recovered/Resolved]
